FAERS Safety Report 5087284-4 (Version None)
Quarter: 2006Q3

REPORT INFORMATION
  Report Type: 
  Country: None (occurrence: None)
  Receive Date: 20060801
  Receipt Date: 20050712
  Transmission Date: 20061208
  Serious: Yes (Hospitalization)
  Sender: FDA-Public Use
  Company Number: OMPQ-PR-0505S-0731

PATIENT
  Age: 73 Year
  Sex: Female

DRUGS (2)
  1. OMNIPAQUE 140 [Suspect]
     Indication: BACK PAIN
     Dosage: , SINGLE DOSE, I.T.
     Dates: start: 20050506, end: 20050506
  2. OMNIPAQUE 140 [Suspect]
     Indication: INTERVERTEBRAL DISC SPACE NARROWING
     Dosage: , SINGLE DOSE, I.T.
     Dates: start: 20050506, end: 20050506

REACTIONS (1)
  - MENINGITIS BACTERIAL [None]
